FAERS Safety Report 23811371 (Version 1)
Quarter: 2024Q2

REPORT INFORMATION
  Report Type: Report from Study
  Country: US (occurrence: US)
  Receive Date: 20240503
  Receipt Date: 20240503
  Transmission Date: 20240716
  Serious: Yes (Other)
  Sender: FDA-Public Use
  Company Number: US-ABBVIE-5628586

PATIENT
  Sex: Male

DRUGS (2)
  1. SKYRIZI [Suspect]
     Active Substance: RISANKIZUMAB-RZAA
     Indication: Product used for unknown indication
     Route: 058
     Dates: start: 20210621
  2. SKYRIZI [Suspect]
     Active Substance: RISANKIZUMAB-RZAA
     Dosage: STOP: JUN 2021
     Route: 058
     Dates: start: 20210618

REACTIONS (9)
  - Vascular occlusion [Unknown]
  - Joint noise [Unknown]
  - Arthralgia [Unknown]
  - Pain in extremity [Unknown]
  - Onychoclasis [Unknown]
  - Onychalgia [Unknown]
  - Asthenia [Unknown]
  - Dizziness [Unknown]
  - Dyspnoea exertional [Unknown]
